FAERS Safety Report 16268647 (Version 2)
Quarter: 2019Q2

REPORT INFORMATION
  Report Type: Spontaneous
  Country: US (occurrence: US)
  Receive Date: 20190503
  Receipt Date: 20190528
  Transmission Date: 20190711
  Serious: Yes (Other)
  Sender: FDA-Public Use
  Company Number: US-ASTELLAS-2019US018301

PATIENT
  Age: 76 Year
  Sex: Female
  Weight: 60 kg

DRUGS (2)
  1. LEXISCAN [Suspect]
     Active Substance: REGADENOSON
     Dosage: 0.4 MG/ML, UNKNOWN FREQ.
     Route: 065
     Dates: start: 20190404, end: 20190404
  2. LEXISCAN [Suspect]
     Active Substance: REGADENOSON
     Indication: PRODUCT USED FOR UNKNOWN INDICATION
     Dosage: UNK UNK, UNKNOWN FREQ.
     Route: 065

REACTIONS (5)
  - Spinal stenosis [Unknown]
  - Circulatory collapse [Unknown]
  - Nausea [Recovered/Resolved]
  - Dizziness [Unknown]
  - Vomiting [Unknown]

NARRATIVE: CASE EVENT DATE: 201904
